FAERS Safety Report 6393624-6 (Version None)
Quarter: 2009Q4

REPORT INFORMATION
  Report Type: 
  Country: None (occurrence: None)
  Receive Date: 20091008
  Receipt Date: 20090925
  Transmission Date: 20100525
  Serious: Yes (Other)
  Sender: FDA-Public Use
  Company Number: US-PFIZER INC-2009265729

PATIENT
  Sex: Female
  Weight: 52.608 kg

DRUGS (3)
  1. CHANTIX [Suspect]
     Indication: SMOKING CESSATION THERAPY
     Dosage: 0.5 MG, 2X/DAY
     Dates: start: 20090415, end: 20090906
  2. XANAX [Suspect]
     Indication: SLEEP DISORDER
     Dosage: UNK
  3. XANAX [Suspect]
     Indication: ANXIETY

REACTIONS (4)
  - DEPRESSION [None]
  - PARANOIA [None]
  - SUICIDAL BEHAVIOUR [None]
  - SUICIDAL IDEATION [None]
